FAERS Safety Report 12011691 (Version 1)
Quarter: 2016Q1

REPORT INFORMATION
  Report Type: Report from Study
  Country: ES (occurrence: ES)
  Receive Date: 20160205
  Receipt Date: 20160205
  Transmission Date: 20160526
  Serious: Yes (Life-Threatening, Hospitalization, Other)
  Sender: FDA-Public Use
  Company Number: ES-ELI_LILLY_AND_COMPANY-ES201602000235

PATIENT
  Age: 52 Year
  Sex: Male

DRUGS (8)
  1. CISPLATIN. [Suspect]
     Active Substance: CISPLATIN
     Dosage: 69 MG/M2, CYCLICAL
     Dates: start: 2008
  2. DOCETAXEL. [Suspect]
     Active Substance: DOCETAXEL
     Dosage: UNK, CYCLICAL
     Route: 042
     Dates: start: 2008
  3. CETUXIMAB [Suspect]
     Active Substance: CETUXIMAB
     Dosage: 231 MG, WEEKLY (1/W)
     Route: 042
     Dates: start: 200801
  4. 5-FLUOROURACIL [Suspect]
     Active Substance: FLUOROURACIL
     Indication: SQUAMOUS CELL CARCINOMA OF HEAD AND NECK
     Dosage: 750 MG/M2, CYCLICAL
     Route: 042
     Dates: start: 20071203, end: 20071226
  5. CISPLATIN. [Suspect]
     Active Substance: CISPLATIN
     Indication: SQUAMOUS CELL CARCINOMA OF HEAD AND NECK
     Dosage: 75 MG/M2, CYCLICAL
     Route: 042
     Dates: start: 20071203, end: 20071226
  6. DOCETAXEL. [Suspect]
     Active Substance: DOCETAXEL
     Indication: SQUAMOUS CELL CARCINOMA OF HEAD AND NECK
     Dosage: 75 MG/M2, CYCLICAL
     Route: 042
     Dates: start: 20071203, end: 20071226
  7. 5-FLUOROURACIL [Suspect]
     Active Substance: FLUOROURACIL
     Dosage: 698 MG/M2, CYCLICAL
     Route: 042
     Dates: start: 2008
  8. CETUXIMAB [Suspect]
     Active Substance: CETUXIMAB
     Indication: SQUAMOUS CELL CARCINOMA OF HEAD AND NECK
     Dosage: 250 MG/M2, WEEKLY (1/W)
     Route: 042
     Dates: start: 20071203, end: 20080102

REACTIONS (2)
  - Septic shock [Recovering/Resolving]
  - Neutropenic infection [Recovered/Resolved]

NARRATIVE: CASE EVENT DATE: 200801
